FAERS Safety Report 5742556-2 (Version None)
Quarter: 2008Q2

REPORT INFORMATION
  Report Type: 
  Country: None (occurrence: None)
  Receive Date: 20080515
  Receipt Date: 20080515
  Transmission Date: 20081010
  Serious: Yes (Hospitalization)
  Sender: FDA-Public Use
  Company Number: None

PATIENT
  Sex: Male

DRUGS (1)
  1. DIGITEK ALL STRENGTHS BERTEK/UDL [Suspect]
     Indication: ARRHYTHMIA
     Dosage: DIGITEK 250 MCG QD PO
     Route: 048
     Dates: start: 20080405

REACTIONS (1)
  - PHARMACEUTICAL PRODUCT COMPLAINT [None]
